FAERS Safety Report 9522329 (Version 1)
Quarter: 2013Q1

REPORT INFORMATION
  Report Type: Spontaneous
  Country: US (occurrence: None)
  Receive Date: 20130305
  Receipt Date: 20130305
  Transmission Date: 20140127
  Serious: Yes (Other)
  Sender: FDA-Public Use
  Company Number: 163-21880-12032087

PATIENT
  Age: 58 Year
  Sex: Male

DRUGS (11)
  1. REVLIMID [Suspect]
     Indication: MYELODYSPLASTIC SYNDROME
     Dosage: 5 MG, 1 IN 1 D, PO
     Route: 048
     Dates: start: 201112
  2. GEMFIBROZIL (GEMFIBROZIL) (UNKNOWN) [Concomitant]
  3. LASIX (FUROSEMIDE) (UNKNOWN) [Concomitant]
  4. LIPITOR (ATORVASTATIN) (UNKNOWN) [Concomitant]
  5. LISINOPRIL (LISINOPRIL) (UNKNOWN) [Concomitant]
  6. METOPROLOL (METOPROLOL) (UNKNOWN) [Concomitant]
  7. OMEPRAZOLE (OMEPRAZOLE) (UNKNOWN) [Concomitant]
  8. POTASSIUM (POTASSIUM) (UNKNOWN [Concomitant]
  9. TAMSULOSIN (TAMSULOSIN) (UNKNOWN) [Concomitant]
  10. TRAVATAN Z (TAVOPROST) (UNKNOWN) [Concomitant]
  11. FLOMAX (TAMSULOSIN) (UNKNOWN) [Concomitant]

REACTIONS (1)
  - Platelet count decreased [None]
